FAERS Safety Report 23928414 (Version 1)
Quarter: 2024Q2

REPORT INFORMATION
  Report Type: Spontaneous
  Country: US (occurrence: US)
  Receive Date: 20240531
  Receipt Date: 20240531
  Transmission Date: 20240715
  Serious: No
  Sender: FDA-Public Use
  Company Number: US-RADIUS HEALTH INC.-2024US002371

PATIENT
  Sex: Female

DRUGS (2)
  1. TYMLOS [Suspect]
     Active Substance: ABALOPARATIDE
     Indication: Senile osteoporosis
     Dosage: 80 MICROGRAM, QD
     Route: 058
  2. TYMLOS [Suspect]
     Active Substance: ABALOPARATIDE
     Dosage: 80 MICROGRAM, QOD
     Route: 058

REACTIONS (8)
  - Influenza like illness [Unknown]
  - Loss of personal independence in daily activities [Unknown]
  - Condition aggravated [Unknown]
  - Pollakiuria [Unknown]
  - Intentional product misuse [Unknown]
  - Headache [Unknown]
  - Nausea [Unknown]
  - Asthenia [Unknown]
